FAERS Safety Report 7572146-0 (Version None)
Quarter: 2011Q2

REPORT INFORMATION
  Report Type: 
  Country: None (occurrence: None)
  Receive Date: 20110624
  Receipt Date: 20110610
  Transmission Date: 20111010
  Serious: Yes (Hospitalization, Other)
  Sender: FDA-Public Use
  Company Number: US-CELGENEUS-163-21660-11051216

PATIENT
  Sex: Male
  Weight: 107.3 kg

DRUGS (28)
  1. FAMOTIDINE [Concomitant]
     Dosage: 20 MILLIGRAM
     Route: 051
     Dates: start: 20110502
  2. RANITIDINE [Concomitant]
     Dosage: 150 MILLIGRAM
     Route: 048
     Dates: start: 20110311, end: 20110604
  3. VANCOMYCIN [Concomitant]
     Indication: INFECTION
     Dosage: 750MG-1000G
     Route: 051
     Dates: start: 20110512, end: 20110604
  4. ATIVAN [Concomitant]
     Indication: NAUSEA
     Dosage: .5 MILLIGRAM
     Route: 048
     Dates: start: 20110404
  5. DEXAMETHASONE [Concomitant]
     Indication: NAUSEA
     Dosage: .25 MILLIGRAM
     Route: 051
     Dates: start: 20110404
  6. HYDROCODONE [Concomitant]
     Indication: PAIN
     Dosage: 10 MILLILITER
     Route: 065
     Dates: start: 20110311
  7. MELOXICAM [Concomitant]
     Indication: OSTEOARTHRITIS
     Dosage: 15 MILLIGRAM
     Route: 048
     Dates: start: 20110311, end: 20110604
  8. NORCO [Concomitant]
     Indication: PAIN
     Dosage: 5/325MG
     Route: 048
     Dates: start: 20110311, end: 20110604
  9. ABRAXANE [Suspect]
     Dosage: 20 MILLIGRAM/SQ. METER
     Route: 065
     Dates: start: 20110405
  10. ABRAXANE [Suspect]
     Dosage: 45 MILLIGRAM
     Route: 051
     Dates: start: 20110509, end: 20110509
  11. CETUXIMAB [Suspect]
     Dosage: 250 MILLIGRAM/SQ. METER
     Route: 065
     Dates: start: 20110405
  12. DEXAMETHASONE [Concomitant]
     Dosage: 4 MILLIGRAM
     Route: 048
     Dates: start: 20110418, end: 20110509
  13. ATIVAN [Concomitant]
     Dosage: 1 MILLIGRAM
     Route: 048
     Dates: start: 20110418, end: 20110509
  14. ERBITUX [Concomitant]
     Dosage: 557 MILLIGRAM
     Route: 051
     Dates: start: 20110328
  15. ABRAXANE [Suspect]
     Dosage: 45 MILLIGRAM
     Route: 051
     Dates: start: 20110328
  16. CISPLATIN [Suspect]
     Dosage: 20 MILLIGRAM/SQ. METER
     Route: 065
     Dates: start: 20110405
  17. METOPROLOL SUCCINATE [Concomitant]
     Indication: HYPERTENSION
     Dosage: 25 MILLIGRAM
     Route: 048
     Dates: start: 20110311
  18. PROCHLORPERAZINE TAB [Concomitant]
     Indication: NAUSEA
     Dosage: 10 MILLIGRAM
     Route: 048
     Dates: start: 20110418, end: 20110509
  19. ONDANSETRON [Concomitant]
     Indication: NAUSEA
     Dosage: 8 MILLIGRAM
     Route: 048
     Dates: start: 20110418, end: 20110509
  20. CISPLATIN [Suspect]
     Dosage: 45 MILLIGRAM
     Route: 051
     Dates: start: 20110415
  21. FLUCONAZOLE [Concomitant]
     Indication: INFECTION
     Dosage: 200MG-400MG
     Route: 051
     Dates: start: 20110514, end: 20110519
  22. ZOSYN [Concomitant]
     Route: 065
     Dates: start: 20110501
  23. ASPIRIN [Concomitant]
     Indication: CORONARY ARTERY DISEASE
     Dosage: 325 MILLIGRAM
     Route: 048
     Dates: start: 20110311, end: 20110604
  24. SOMA [Concomitant]
     Indication: PAIN
     Dosage: 350 MILLIGRAM
     Route: 048
     Dates: start: 20110311, end: 20110604
  25. DIPHENHYDRAMIN [Concomitant]
     Indication: PREMEDICATION
     Dosage: 50 MILLIGRAM
     Route: 048
     Dates: start: 20110328, end: 20110509
  26. PRILOSEC [Concomitant]
     Dosage: 40 MILLIGRAM
     Route: 048
     Dates: start: 20110311
  27. CETUXIMAB [Suspect]
     Route: 051
     Dates: start: 20110328
  28. PRAVACHOL [Concomitant]
     Dosage: 40 MILLIGRAM
     Route: 048
     Dates: start: 20110311, end: 20110604

REACTIONS (11)
  - NEUTROPHIL COUNT DECREASED [None]
  - RENAL FAILURE ACUTE [None]
  - DEEP VEIN THROMBOSIS [None]
  - DYSPHAGIA [None]
  - NAUSEA [None]
  - GASTRIC PERFORATION [None]
  - LYMPHOCYTE COUNT DECREASED [None]
  - WHITE BLOOD CELL COUNT DECREASED [None]
  - STAPHYLOCOCCAL BACTERAEMIA [None]
  - PULMONARY EMBOLISM [None]
  - DERMATITIS BULLOUS [None]
